FAERS Safety Report 24180536 (Version 1)
Quarter: 2024Q3

REPORT INFORMATION
  Report Type: Spontaneous
  Country: US (occurrence: None)
  Receive Date: 20240806
  Receipt Date: 20240806
  Transmission Date: 20241016
  Serious: No
  Sender: Public
  Company Number: None

PATIENT

DRUGS (2)
  1. SCOPOLAMINE [Suspect]
     Active Substance: SCOPOLAMINE
  2. CLONIDINE [Suspect]
     Active Substance: CLONIDINE

REACTIONS (2)
  - Wrong technique in device usage process [None]
  - Product administration error [None]
